FAERS Safety Report 21986388 (Version 2)
Quarter: 2023Q1

REPORT INFORMATION
  Report Type: Spontaneous
  Country: US (occurrence: US)
  Receive Date: 20230213
  Receipt Date: 20230320
  Transmission Date: 20230417
  Serious: No
  Sender: FDA-Public Use
  Company Number: US-BRISTOL-MYERS SQUIBB COMPANY-2023-020664

PATIENT
  Age: 74 Year
  Sex: Male
  Weight: 90.72 kg

DRUGS (1)
  1. REVLIMID [Suspect]
     Active Substance: LENALIDOMIDE
     Indication: Diffuse large B-cell lymphoma
     Dosage: FREQUENCY:  21D ON 7D OFF
     Route: 048
     Dates: start: 20221101

REACTIONS (4)
  - Cystitis [Unknown]
  - Rash [Unknown]
  - Diarrhoea [Unknown]
  - Off label use [Unknown]
